FAERS Safety Report 7899929-1 (Version None)
Quarter: 2011Q4

REPORT INFORMATION
  Report Type: 
  Country: None (occurrence: None)
  Receive Date: 20111107
  Receipt Date: 20111007
  Transmission Date: 20120403
  Serious: No
  Sender: FDA-Public Use
  Company Number: US-AMGEN-USASP2011038209

PATIENT
  Age: 38 Year
  Sex: Female

DRUGS (3)
  1. ZOLOFT [Concomitant]
     Dosage: UNK
  2. ENBREL [Suspect]
     Indication: PSORIASIS
     Dosage: 50 MG, 2 TIMES/WK
     Dates: start: 20110624, end: 20110802
  3. AVIANE-28 [Concomitant]
     Dosage: UNK

REACTIONS (8)
  - INJECTION SITE SCAR [None]
  - INJECTION SITE PAIN [None]
  - INJECTION SITE SWELLING [None]
  - INJECTION SITE HAEMATOMA [None]
  - INJECTION SITE WARMTH [None]
  - INJECTION SITE REACTION [None]
  - INJECTION SITE ERYTHEMA [None]
  - INJECTION SITE PRURITUS [None]
